FAERS Safety Report 5274114-0 (Version None)
Quarter: 2007Q1

REPORT INFORMATION
  Report Type: 
  Country: None (occurrence: None)
  Receive Date: 20070323
  Receipt Date: 20070322
  Transmission Date: 20070707
  Serious: Yes (Hospitalization)
  Sender: FDA-Public Use
  Company Number: BR-BRISTOL-MYERS SQUIBB COMPANY-13681838

PATIENT
  Age: 61 Year
  Sex: Female

DRUGS (4)
  1. ABATACEPT [Suspect]
     Indication: RHEUMATOID ARTHRITIS
     Route: 042
     Dates: start: 20030519
  2. METHOTREXATE [Suspect]
     Dates: start: 20020416, end: 20070209
  3. METHYLPREDNISOLONE 16MG TAB [Concomitant]
     Dates: start: 20020416, end: 20070212
  4. DICLOFENAC SODIUM [Concomitant]
     Dates: start: 20030519, end: 20070212

REACTIONS (1)
  - ABSCESS LIMB [None]
